FAERS Safety Report 7270058-3 (Version None)
Quarter: 2011Q1

REPORT INFORMATION
  Report Type: 
  Country: None (occurrence: None)
  Receive Date: 20110202
  Receipt Date: 20110131
  Transmission Date: 20110831
  Serious: Yes (Hospitalization, Other)
  Sender: FDA-Public Use
  Company Number: CN-ROCHE-756350

PATIENT
  Age: 43 Year
  Sex: Female

DRUGS (1)
  1. CEFTRIAXONE SODIUM [Suspect]
     Route: 065
     Dates: start: 20080101

REACTIONS (4)
  - DECREASED APPETITE [None]
  - HAEMOLYTIC ANAEMIA [None]
  - PORTAL VEIN THROMBOSIS [None]
  - INTESTINAL OBSTRUCTION [None]
